FAERS Safety Report 4472337-1 (Version None)
Quarter: 2004Q4

REPORT INFORMATION
  Report Type: 
  Country: None (occurrence: None)
  Receive Date: 20041007
  Receipt Date: 20041001
  Transmission Date: 20050328
  Serious: Yes (Other)
  Sender: FDA-Public Use
  Company Number: 200420755BWH

PATIENT

DRUGS (1)
  1. CIPRO [Suspect]
     Dosage: 1000 MG, TOTAL DAILY, ORAL
     Route: 048

REACTIONS (1)
  - AMNESIA [None]
